FAERS Safety Report 4727431-4 (Version None)
Quarter: 2005Q3

REPORT INFORMATION
  Report Type: 
  Country: None (occurrence: None)
  Receive Date: 20050727
  Receipt Date: 20050727
  Transmission Date: 20060218
  Serious: Yes (Hospitalization)
  Sender: FDA-Public Use
  Company Number: None

PATIENT
  Age: 63 Year
  Sex: Male
  Weight: 111 kg

DRUGS (17)
  1. METOPROLOL [Suspect]
     Indication: BLOOD PRESSURE
     Dosage: 75 MG PO BID [CHRONIC]
     Route: 048
  2. ASPIRIN [Concomitant]
  3. LISINOPRIL [Concomitant]
  4. IDM [Concomitant]
  5. LASIX [Concomitant]
  6. POTASSIUM CHLORIDE [Concomitant]
  7. LOPID [Concomitant]
  8. VICODIN [Concomitant]
  9. METHADONE HCL [Concomitant]
  10. NEURONTIN [Concomitant]
  11. BACLOFEN [Concomitant]
  12. ZANAFLEX [Concomitant]
  13. TRAZODONE HCL [Concomitant]
  14. ZOLOFT [Concomitant]
  15. MORPHINE [Concomitant]
  16. INSULIN [Concomitant]
  17. CPAP [Concomitant]

REACTIONS (6)
  - CONFUSIONAL STATE [None]
  - DISORIENTATION [None]
  - HEART RATE DECREASED [None]
  - INCORRECT DOSE ADMINISTERED [None]
  - OVERDOSE [None]
  - SOMNOLENCE [None]
